FAERS Safety Report 6963474-8 (Version None)
Quarter: 2010Q3

REPORT INFORMATION
  Report Type: 
  Country: None (occurrence: None)
  Receive Date: 20100902
  Receipt Date: 20100823
  Transmission Date: 20110219
  Serious: Yes (Hospitalization)
  Sender: FDA-Public Use
  Company Number: US-JNJFOC-20100702747

PATIENT
  Sex: Male
  Weight: 123.38 kg

DRUGS (3)
  1. INVEGA [Suspect]
     Indication: HALLUCINATION
     Route: 048
  2. INVEGA [Suspect]
     Indication: DELUSION
     Route: 048
  3. HALDOL [Suspect]
     Indication: PRODUCT USED FOR UNKNOWN INDICATION
     Route: 030

REACTIONS (3)
  - CONDITION AGGRAVATED [None]
  - OFF LABEL USE [None]
  - SUICIDAL IDEATION [None]
